FAERS Safety Report 5535400-X (Version None)
Quarter: 2007Q4

REPORT INFORMATION
  Report Type: 
  Country: None (occurrence: None)
  Receive Date: 20071206
  Receipt Date: 20071129
  Transmission Date: 20080405
  Serious: Yes (Life-Threatening, Hospitalization, Other)
  Sender: FDA-Public Use
  Company Number: FR-AVENTIS-200721050GDDC

PATIENT
  Age: 35 Year
  Sex: Male

DRUGS (7)
  1. RIFADIN [Suspect]
     Indication: TUBERCULOSIS
     Dates: start: 20070928
  2. BACTRIM [Suspect]
     Indication: PROPHYLAXIS
     Dates: start: 20070928, end: 20071114
  3. SUSTIVA [Suspect]
     Indication: HIV INFECTION
     Dates: start: 20071030
  4. TRUVADA [Suspect]
     Indication: HIV INFECTION
     Dates: start: 20071030
  5. RIMIFON [Concomitant]
     Dates: start: 20070928
  6. ETHAMBUTOL HYDROCHLORIDE [Concomitant]
     Dates: start: 20070928
  7. PIRILENE [Concomitant]
     Dates: start: 20071030

REACTIONS (4)
  - COR PULMONALE ACUTE [None]
  - PHLEBITIS [None]
  - PULMONARY EMBOLISM [None]
  - PYREXIA [None]
